FAERS Safety Report 14438728 (Version 2)
Quarter: 2018Q1

REPORT INFORMATION
  Report Type: Spontaneous
  Country: FR (occurrence: FR)
  Receive Date: 20180125
  Receipt Date: 20180327
  Transmission Date: 20180509
  Serious: Yes (Life-Threatening, Other)
  Sender: FDA-Public Use
  Company Number: FR-PFIZER INC-2017509978

PATIENT
  Age: 30 Year
  Sex: Male
  Weight: 75 kg

DRUGS (6)
  1. REMIFENTANIL [Suspect]
     Active Substance: REMIFENTANIL
     Dosage: 6 NG, SINGLE
     Route: 041
     Dates: start: 20161117, end: 20161117
  2. PROPOFOL. [Suspect]
     Active Substance: PROPOFOL
     Dosage: 280 MG, SINGLE
     Route: 041
     Dates: start: 20161117, end: 20161117
  3. PARACETAMOL [Suspect]
     Active Substance: ACETAMINOPHEN
     Dosage: 1 G, SINGLE
     Route: 041
     Dates: start: 20161117, end: 20161117
  4. AMOXICILLINE/ACIDE CLAVULANIQ. SANDOZ [Suspect]
     Active Substance: AMOXICILLIN\CLAVULANIC ACID
     Indication: ANTIBIOTIC PROPHYLAXIS
     Dosage: 2 G, SINGLE
     Route: 041
     Dates: start: 20161117, end: 20161117
  5. KETOPROFENE /00321701/ [Suspect]
     Active Substance: KETOPROFEN
     Dosage: 100 MG, SINGLE
     Route: 041
     Dates: start: 20161117
  6. PRIMACAINE ADRENALINE [Suspect]
     Active Substance: ARTICAINE HYDROCHLORIDE\EPINEPHRINE BITARTRATE
     Indication: DENTAL LOCAL ANAESTHESIA
     Dosage: UNK
     Route: 048
     Dates: start: 20161117, end: 20161117

REACTIONS (1)
  - Anaphylactic shock [Recovered/Resolved]

NARRATIVE: CASE EVENT DATE: 20161117
